FAERS Safety Report 5707346-5 (Version None)
Quarter: 2008Q2

REPORT INFORMATION
  Report Type: 
  Country: None (occurrence: None)
  Receive Date: 20080416
  Receipt Date: 20080410
  Transmission Date: 20081010
  Serious: Yes (Death)
  Sender: FDA-Public Use
  Company Number: TW-AVENTIS-200813281GDDC

PATIENT
  Age: 50 Year
  Sex: Female
  Weight: 48 kg

DRUGS (6)
  1. TAXOTERE [Suspect]
     Indication: BREAST CANCER
     Route: 042
     Dates: start: 20080313, end: 20080313
  2. EPIRUBICIN [Suspect]
     Indication: BREAST CANCER
     Route: 042
     Dates: start: 20071212, end: 20080313
  3. CYCLOPHOSPHAMIDE [Suspect]
     Indication: BREAST CANCER
     Route: 042
     Dates: start: 20071212, end: 20080313
  4. VENA [Concomitant]
     Route: 042
     Dates: start: 20080313, end: 20080313
  5. RINDERON                           /00008501/ [Concomitant]
     Route: 042
     Dates: start: 20080313, end: 20080313
  6. KYTRIL                             /01178101/ [Concomitant]
     Route: 042
     Dates: start: 20080313, end: 20080313

REACTIONS (2)
  - HEPATIC FAILURE [None]
  - HEPATITIS FULMINANT [None]
